FAERS Safety Report 6215801-7 (Version None)
Quarter: 2009Q2

REPORT INFORMATION
  Report Type: 
  Country: None (occurrence: None)
  Receive Date: 20090603
  Receipt Date: 20090511
  Transmission Date: 20091009
  Serious: Yes (Other)
  Sender: FDA-Public Use
  Company Number: AU-GENENTECH-284091

PATIENT

DRUGS (1)
  1. HERCEPTIN [Suspect]
     Indication: METASTATIC NEOPLASM
     Dosage: UNK
     Route: 042

REACTIONS (1)
  - LEUKOENCEPHALOPATHY [None]
